FAERS Safety Report 26191390 (Version 2)
Quarter: 2025Q4

REPORT INFORMATION
  Report Type: Spontaneous
  Country: CN (occurrence: None)
  Receive Date: 20251223
  Receipt Date: 20251230
  Transmission Date: 20260118
  Serious: Yes (Other)
  Sender: AMERICAN REGENT
  Company Number: CN-AMERICAN REGENT INC-2025004458

PATIENT
  Age: 53 Year
  Sex: Female
  Weight: 59 kg

DRUGS (4)
  1. FERINJECT [Suspect]
     Active Substance: FERRIC CARBOXYMALTOSE
     Indication: Iron deficiency anaemia
     Dosage: 500 MILLIGRAM
     Dates: start: 20240625, end: 20240625
  2. FERINJECT [Suspect]
     Active Substance: FERRIC CARBOXYMALTOSE
     Dosage: 1000 MILLIGRAM
  3. FERINJECT [Suspect]
     Active Substance: FERRIC CARBOXYMALTOSE
     Dosage: 1000 MILLIGRAM, TOT
     Dates: start: 20241226, end: 20241226
  4. SODIUM CHLORIDE [Concomitant]
     Active Substance: SODIUM CHLORIDE
     Indication: Product used for unknown indication
     Dosage: UNK
     Route: 065

REACTIONS (7)
  - Nephrolithiasis [Not Recovered/Not Resolved]
  - Heavy menstrual bleeding [Recovered/Resolved]
  - Oligomenorrhoea [Recovered/Resolved]
  - Blood parathyroid hormone increased [Unknown]
  - Blood 1,25-dihydroxycholecalciferol decreased [Unknown]
  - Hypophosphataemia [Recovered/Resolved]
  - Urine phosphorus increased [Unknown]

NARRATIVE: CASE EVENT DATE: 20250101
